FAERS Safety Report 9821366 (Version 1)
Quarter: 2013Q4

REPORT INFORMATION
  Report Type: Spontaneous
  Country: US (occurrence: None)
  Receive Date: 20131028
  Receipt Date: 20131028
  Transmission Date: 20140711
  Serious: No
  Sender: FDA-Public Use
  Company Number: 2013US001234

PATIENT
  Age: 44 Year
  Sex: Female

DRUGS (1)
  1. ICLUSIG [Suspect]
     Route: 048

REACTIONS (3)
  - Hypersensitivity [None]
  - Dyspnoea [None]
  - Hepatotoxicity [None]
